FAERS Safety Report 12846547 (Version 2)
Quarter: 2017Q2

REPORT INFORMATION
  Report Type: Report from Study
  Country: IT (occurrence: IT)
  Receive Date: 20161014
  Receipt Date: 20170413
  Transmission Date: 20170830
  Serious: Yes (Hospitalization)
  Sender: FDA-Public Use
  Company Number: IT-ROCHE-1842114

PATIENT
  Age: 40 Year
  Sex: Female
  Weight: 54 kg

DRUGS (4)
  1. BEVACIZUMAB [Suspect]
     Active Substance: BEVACIZUMAB
     Indication: OVARIAN CANCER
     Dosage: LAST DOSE ON 02/MAR/2015
     Route: 042
     Dates: start: 20141205
  2. CARBOPLATIN. [Suspect]
     Active Substance: CARBOPLATIN
     Indication: OVARIAN CANCER
     Dosage: AUC 4?LAST DOSE ON 02/MAR/2015
     Route: 042
     Dates: start: 20141205
  3. LEVETIRACETAM. [Concomitant]
     Active Substance: LEVETIRACETAM
     Route: 065
  4. TRABECTEDIN [Suspect]
     Active Substance: TRABECTEDIN
     Indication: OVARIAN CANCER
     Dosage: LAST DOSE ON 02/MAR/2015
     Route: 042
     Dates: start: 20141205

REACTIONS (1)
  - Loss of consciousness [Recovered/Resolved]

NARRATIVE: CASE EVENT DATE: 20150316
